FAERS Safety Report 7438022-9 (Version None)
Quarter: 2011Q2

REPORT INFORMATION
  Report Type: 
  Country: None (occurrence: None)
  Receive Date: 20110426
  Receipt Date: 20110114
  Transmission Date: 20111010
  Serious: No
  Sender: FDA-Public Use
  Company Number: US-MYLANLABS-2011S1001035

PATIENT
  Sex: Female

DRUGS (4)
  1. CLONIDINE [Concomitant]
     Indication: BLOOD PRESSURE
  2. NITROFURANTOIN MONOHYDRATE/MACROCRYSTALS [Suspect]
     Indication: CYSTITIS
     Route: 048
     Dates: start: 20110113, end: 20110114
  3. HYOSCYAMINE [Concomitant]
     Indication: MUSCLE SPASMS
  4. AMLODIPINE [Concomitant]
     Indication: BLOOD PRESSURE

REACTIONS (4)
  - BACK PAIN [None]
  - ABDOMINAL DISTENSION [None]
  - REACTION TO DRUG EXCIPIENTS [None]
  - ABDOMINAL PAIN [None]
